FAERS Safety Report 7079481-3 (Version None)
Quarter: 2010Q4

REPORT INFORMATION
  Report Type: 
  Country: None (occurrence: None)
  Receive Date: 20101102
  Receipt Date: 20101022
  Transmission Date: 20110411
  Serious: Yes (Other)
  Sender: FDA-Public Use
  Company Number: US-AMGEN-USASP2010001406

PATIENT

DRUGS (1)
  1. ENBREL [Suspect]
     Indication: PSORIATIC ARTHROPATHY
     Dates: start: 20101020

REACTIONS (8)
  - ABDOMINAL PAIN [None]
  - DEPRESSED LEVEL OF CONSCIOUSNESS [None]
  - DIZZINESS [None]
  - DREAMY STATE [None]
  - INJECTION SITE PRURITUS [None]
  - MUSCULAR WEAKNESS [None]
  - NAUSEA [None]
  - PARAESTHESIA ORAL [None]
